FAERS Safety Report 6834342-7 (Version None)
Quarter: 2010Q3

REPORT INFORMATION
  Report Type: 
  Country: None (occurrence: None)
  Receive Date: 20100712
  Receipt Date: 20070419
  Transmission Date: 20110219
  Serious: No
  Sender: FDA-Public Use
  Company Number: US-PFIZER INC-2007033209

PATIENT
  Sex: Female
  Weight: 86.3 kg

DRUGS (5)
  1. CHANTIX [Suspect]
     Indication: SMOKING CESSATION THERAPY
     Dates: start: 20070409
  2. ZOCOR [Concomitant]
  3. WELLBUTRIN [Concomitant]
  4. CELEBREX [Concomitant]
  5. ACETAMINOPHEN [Concomitant]
     Indication: SLEEP DISORDER

REACTIONS (7)
  - ABNORMAL DREAMS [None]
  - DIARRHOEA [None]
  - FATIGUE [None]
  - FLATULENCE [None]
  - NAUSEA [None]
  - POLLAKIURIA [None]
  - RETCHING [None]
